FAERS Safety Report 4792877-5 (Version None)
Quarter: 2005Q4

REPORT INFORMATION
  Report Type: 
  Country: None (occurrence: None)
  Receive Date: 20051010
  Receipt Date: 20050531
  Transmission Date: 20060501
  Serious: Yes (Other)
  Sender: FDA-Public Use
  Company Number: PHBS2005NO07901

PATIENT
  Age: 82 Year
  Sex: Male

DRUGS (7)
  1. ZOMETA [Suspect]
     Indication: PROSTATE CANCER METASTATIC
     Dosage: 4 MG EVERY 4 WKS
     Route: 042
     Dates: start: 20030801, end: 20040401
  2. RADIATION THERAPY [Concomitant]
     Route: 065
     Dates: start: 20030601
  3. RADIATION THERAPY [Concomitant]
     Route: 065
     Dates: start: 20040601
  4. PREDNISOLONE [Concomitant]
     Dosage: 10 MG, BID
     Route: 065
     Dates: start: 20030901, end: 20050101
  5. PREDNISOLONE [Concomitant]
     Dosage: 10 MG, QD
     Route: 065
     Dates: start: 20050101
  6. TAXOTERE [Concomitant]
     Dosage: TOTAL 5 TREATMENTS
     Route: 065
     Dates: start: 20040820, end: 20040901
  7. TAXOTERE [Concomitant]
     Dosage: TOTAL SEVEN TREATMENTS
     Route: 065
     Dates: start: 20041001, end: 20050218

REACTIONS (4)
  - BONE DISORDER [None]
  - OSTEOMYELITIS [None]
  - OSTEONECROSIS [None]
  - PAIN IN JAW [None]
